FAERS Safety Report 7277880-8 (Version None)
Quarter: 2011Q1

REPORT INFORMATION
  Report Type: 
  Country: None (occurrence: None)
  Receive Date: 20110207
  Receipt Date: 20110131
  Transmission Date: 20110831
  Serious: Yes (Death, Other)
  Sender: FDA-Public Use
  Company Number: GB-GENZYME-CAMP-1001027

PATIENT
  Age: 43 Year
  Sex: Female

DRUGS (9)
  1. CAMPATH [Suspect]
     Indication: ACUTE GRAFT VERSUS HOST DISEASE IN LIVER
     Dosage: UNK
     Route: 065
  2. OCTAGAM [Concomitant]
     Indication: PRODUCT USED FOR UNKNOWN INDICATION
     Dosage: 5 G, UNK
     Route: 042
  3. FRESH FROZEN PLASMA [Concomitant]
     Indication: PRODUCT USED FOR UNKNOWN INDICATION
     Dosage: UNK
     Route: 042
  4. MYCOPHENOLATE MOFETIL [Concomitant]
     Indication: INTESTINAL TRANSPLANT
     Dosage: UNK
     Route: 065
  5. TACROLIMUS [Concomitant]
     Indication: IMMUNOSUPPRESSION
  6. MYCOPHENOLATE MOFETIL [Concomitant]
     Indication: IMMUNOSUPPRESSION
  7. TACROLIMUS [Concomitant]
     Indication: INTESTINAL TRANSPLANT
     Dosage: UNK
     Route: 065
  8. PLATELETS [Concomitant]
     Indication: PRODUCT USED FOR UNKNOWN INDICATION
     Dosage: UNK
     Route: 042
  9. CAMPATH [Suspect]
     Dosage: UNK
     Route: 065

REACTIONS (9)
  - UROSEPSIS [None]
  - PNEUMONIA STAPHYLOCOCCAL [None]
  - FUNGAL SEPSIS [None]
  - RENAL FAILURE [None]
  - HAEMOLYSIS [None]
  - HAEMOLYTIC ANAEMIA [None]
  - CEREBRAL INFARCTION [None]
  - CLOSTRIDIAL INFECTION [None]
  - GRAFT VERSUS HOST DISEASE [None]
